FAERS Safety Report 5717483-7 (Version None)
Quarter: 2008Q2

REPORT INFORMATION
  Report Type: 
  Country: None (occurrence: None)
  Receive Date: 20080425
  Receipt Date: 20080417
  Transmission Date: 20081010
  Serious: Yes (Hospitalization)
  Sender: FDA-Public Use
  Company Number: CN-BAYER-200817038GPV

PATIENT
  Age: 49 Year
  Sex: Male
  Weight: 80 kg

DRUGS (3)
  1. FLUDARA [Suspect]
     Indication: T-CELL LYMPHOMA
     Route: 048
     Dates: start: 20080312, end: 20080314
  2. DEXAMETHASONE TAB [Suspect]
     Indication: T-CELL LYMPHOMA
     Route: 048
     Dates: start: 20080312, end: 20080316
  3. A-THYMIC PEPTIDE [Concomitant]
     Indication: T-CELL LYMPHOMA
     Dates: start: 20080314

REACTIONS (3)
  - ALOPECIA [None]
  - BONE MARROW FAILURE [None]
  - LUNG INFECTION [None]
